FAERS Safety Report 22265307 (Version 4)
Quarter: 2024Q3

REPORT INFORMATION
  Report Type: Report from Study
  Country: US (occurrence: US)
  Receive Date: 20230428
  Receipt Date: 20240923
  Transmission Date: 20241017
  Serious: Yes (Other)
  Sender: ABBVIE
  Company Number: US-ABBVIE-4703297

PATIENT
  Age: 79 Year
  Sex: Female

DRUGS (5)
  1. IMBRUVICA [Suspect]
     Active Substance: IBRUTINIB
     Indication: Chronic lymphocytic leukaemia
     Route: 048
     Dates: start: 20210709
  2. IMBRUVICA [Suspect]
     Active Substance: IBRUTINIB
     Indication: Chronic lymphocytic leukaemia
     Dosage: TIME INTERVAL: 0.33333333 DAYS: LAST ADMIN DATE: 2021
     Route: 048
     Dates: start: 202106
  3. FLONASE [Suspect]
     Active Substance: FLUTICASONE PROPIONATE
     Indication: Product used for unknown indication
     Route: 065
  4. LEVOCETIRIZINE HYDROCHLORIDE [Suspect]
     Active Substance: LEVOCETIRIZINE HYDROCHLORIDE
     Indication: Product used for unknown indication
     Route: 065
  5. FLUTICASONE [Concomitant]
     Active Substance: FLUTICASONE
     Indication: Product used for unknown indication

REACTIONS (7)
  - Deafness [Unknown]
  - Dysphonia [Unknown]
  - Productive cough [Not Recovered/Not Resolved]
  - Ear congestion [Not Recovered/Not Resolved]
  - Middle ear effusion [Unknown]
  - Temporomandibular pain and dysfunction syndrome [Unknown]
  - Somnolence [Unknown]

NARRATIVE: CASE EVENT DATE: 20230318
